FAERS Safety Report 7385145-9 (Version None)
Quarter: 2011Q1

REPORT INFORMATION
  Report Type: 
  Country: None (occurrence: None)
  Receive Date: 20110330
  Receipt Date: 20110323
  Transmission Date: 20110831
  Serious: Yes (Hospitalization)
  Sender: FDA-Public Use
  Company Number: US-PFIZER INC-2011010057

PATIENT
  Age: 69 Year
  Sex: Female
  Weight: 49.1 kg

DRUGS (11)
  1. TORISEL [Suspect]
     Indication: ENDOMETRIAL CANCER METASTATIC
     Dosage: 25 MG OVER 30 MINUTES WEEKLY
     Route: 042
     Dates: start: 20101027, end: 20110101
  2. NIASPAN [Concomitant]
  3. CITRACAL [Concomitant]
  4. FLONASE [Concomitant]
  5. IMODIUM [Concomitant]
  6. ACETYLSALICYLIC ACID [Concomitant]
  7. TENORMIN [Concomitant]
  8. PRAVASTATIN [Concomitant]
  9. TORISEL [Suspect]
     Dosage: 20 MG, WEEKLY
     Dates: start: 20110107, end: 20110107
  10. COMPAZINE [Concomitant]
  11. CENTRUM SILVER [Concomitant]

REACTIONS (2)
  - CLOSTRIDIAL INFECTION [None]
  - SMALL INTESTINAL OBSTRUCTION [None]
